FAERS Safety Report 9280668 (Version 1)
Quarter: 2013Q2

REPORT INFORMATION
  Report Type: Spontaneous
  Country: US (occurrence: US)
  Receive Date: 20130509
  Receipt Date: 20130509
  Transmission Date: 20140414
  Serious: No
  Sender: FDA-Public Use
  Company Number: US-PFIZER INC-2013139907

PATIENT
  Age: 75 Year
  Sex: Female
  Weight: 68.03 kg

DRUGS (5)
  1. NORVASC [Suspect]
     Indication: HYPERTENSION
     Dosage: UNK
  2. SYNTHROID [Interacting]
     Indication: GOITRE
     Dosage: 125 UG, 1X/DAY
  3. LABETALOL [Interacting]
     Indication: HYPERTENSION
     Dosage: UNK
  4. EFFEXOR [Concomitant]
     Dosage: UNK
  5. TEGRETOL [Concomitant]
     Dosage: UNK

REACTIONS (3)
  - Drug interaction [Unknown]
  - Stomatitis [Unknown]
  - Throat irritation [Unknown]
